FAERS Safety Report 17871094 (Version 1)
Quarter: 2020Q2

REPORT INFORMATION
  Report Type: Spontaneous
  Country: US (occurrence: US)
  Receive Date: 20200608
  Receipt Date: 20200608
  Transmission Date: 20200714
  Serious: No
  Sender: FDA-Public Use
  Company Number: None

PATIENT
  Age: 75 Year
  Sex: Male
  Weight: 75.6 kg

DRUGS (18)
  1. VITAMIN D [Concomitant]
     Active Substance: VITAMIN D NOS
  2. LOPERAMIDE [Concomitant]
     Active Substance: LOPERAMIDE
  3. SPIRINOLACTONE [Concomitant]
     Active Substance: SPIRONOLACTONE
  4. ABIRATERONE. [Suspect]
     Active Substance: ABIRATERONE ACETATE
     Dates: start: 20200120, end: 20200608
  5. CARVEDILOL. [Concomitant]
     Active Substance: CARVEDILOL
  6. NITROGLYCERIN. [Concomitant]
     Active Substance: NITROGLYCERIN
  7. VITAMIN B12 [Concomitant]
     Active Substance: CYANOCOBALAMIN
  8. ASPIRIN. [Concomitant]
     Active Substance: ASPIRIN
  9. ASCORBIC ACID. [Concomitant]
     Active Substance: ASCORBIC ACID
  10. CALCIUM [Concomitant]
     Active Substance: CALCIUM
  11. PREDNISONE. [Concomitant]
     Active Substance: PREDNISONE
  12. PANTOPRAZOLE [Concomitant]
     Active Substance: PANTOPRAZOLE
  13. VALSARTAN. [Concomitant]
     Active Substance: VALSARTAN
  14. LASIX [Concomitant]
     Active Substance: FUROSEMIDE
  15. ELIQUIS [Concomitant]
     Active Substance: APIXABAN
  16. LIPITOR [Concomitant]
     Active Substance: ATORVASTATIN CALCIUM
  17. ALENDRONATE [Concomitant]
     Active Substance: ALENDRONATE SODIUM
  18. FERROUS SULFATE. [Concomitant]
     Active Substance: FERROUS SULFATE

REACTIONS (1)
  - Disease progression [None]

NARRATIVE: CASE EVENT DATE: 20200608
